FAERS Safety Report 24584441 (Version 4)
Quarter: 2025Q2

REPORT INFORMATION
  Report Type: Spontaneous
  Country: US (occurrence: US)
  Receive Date: 20241106
  Receipt Date: 20250501
  Transmission Date: 20250717
  Serious: No
  Sender: ALEXION PHARMACEUTICALS
  Company Number: US-AstraZeneca-CH-00724164AP

PATIENT

DRUGS (1)
  1. BREZTRI [Suspect]
     Active Substance: BUDESONIDE\FORMOTEROL\GLYCOPYRROLATE
     Route: 065

REACTIONS (17)
  - Fatigue [Unknown]
  - Cough [Unknown]
  - Oesophageal irritation [Unknown]
  - Chest pain [Unknown]
  - Arthritis [Unknown]
  - Secretion discharge [Unknown]
  - Dysphonia [Unknown]
  - Bronchial irritation [Unknown]
  - Drug delivery system issue [Unknown]
  - Product use issue [Unknown]
  - Incorrect dose administered by device [Unknown]
  - Product use issue [Unknown]
  - Product cleaning inadequate [Unknown]
  - Off label use [Unknown]
  - Incorrect dose administered [Unknown]
  - Drug ineffective [Unknown]
  - Drug delivery system issue [Unknown]
